FAERS Safety Report 5179351-1 (Version None)
Quarter: 2006Q4

REPORT INFORMATION
  Report Type: 
  Country: None (occurrence: None)
  Receive Date: 20061211
  Receipt Date: 20061127
  Transmission Date: 20070319
  Serious: Yes (Death, Hospitalization)
  Sender: FDA-Public Use
  Company Number: CERZ-11360

PATIENT
  Age: 27 Year
  Sex: Male
  Weight: 52 kg

DRUGS (1)
  1. CEREZYME [Suspect]
     Indication: GAUCHER'S DISEASE
     Dosage: 60 U/KG Q2WKS IV
     Route: 042
     Dates: start: 20010501, end: 20061009

REACTIONS (28)
  - ASCITES [None]
  - ASPARTATE AMINOTRANSFERASE INCREASED [None]
  - BLOOD ALKALINE PHOSPHATASE INCREASED [None]
  - BLOOD GLUCOSE INCREASED [None]
  - BLOOD URINE PRESENT [None]
  - CARDIOMEGALY [None]
  - COUGH [None]
  - DYSPNOEA [None]
  - FLUSHING [None]
  - GALLOP RHYTHM PRESENT [None]
  - GENERALISED OEDEMA [None]
  - HEART RATE INCREASED [None]
  - HEPATIC MASS [None]
  - HYPOTENSION [None]
  - HYPOXIA [None]
  - MITRAL VALVE INCOMPETENCE [None]
  - OEDEMA PERIPHERAL [None]
  - PO2 INCREASED [None]
  - PORTAL HYPERTENSION [None]
  - PROTEIN URINE PRESENT [None]
  - PULMONARY HYPERTENSION [None]
  - PYREXIA [None]
  - RESPIRATORY DISTRESS [None]
  - RESPIRATORY RATE INCREASED [None]
  - SEPTIC SHOCK [None]
  - URINE BILIRUBIN INCREASED [None]
  - URINE KETONE BODY PRESENT [None]
  - WHEEZING [None]
